FAERS Safety Report 5695080-X (Version None)
Quarter: 2008Q2

REPORT INFORMATION
  Report Type: 
  Country: None (occurrence: None)
  Receive Date: 20080404
  Receipt Date: 20080206
  Transmission Date: 20081010
  Serious: No
  Sender: FDA-Public Use
  Company Number: US-BAYER-200814347NA

PATIENT
  Age: 65 Year
  Sex: Female
  Weight: 100 kg

DRUGS (2)
  1. MAGNEVIST [Suspect]
     Indication: NUCLEAR MAGNETIC RESONANCE IMAGING BRAIN
     Route: 042
     Dates: start: 20080123, end: 20080123
  2. PREDNISONE [Concomitant]
     Indication: PREMEDICATION

REACTIONS (1)
  - PRURITUS [None]
